FAERS Safety Report 6790521-9 (Version None)
Quarter: 2010Q2

REPORT INFORMATION
  Report Type: 
  Country: None (occurrence: None)
  Receive Date: 20100624
  Receipt Date: 20100621
  Transmission Date: 20101027
  Serious: Yes (Hospitalization)
  Sender: FDA-Public Use
  Company Number: UY-ROCHE-708974

PATIENT
  Sex: Female
  Weight: 74 kg

DRUGS (12)
  1. TOCILIZUMAB [Suspect]
     Indication: RHEUMATOID ARTHRITIS
     Dosage: DOSE FORM: AMPULE, LAST DOSE PRIOR TO SAE: 04 JUNE 2010, TEMPORARILY INTERRUPTED.
     Route: 042
     Dates: start: 20091214
  2. METHOTREXATE [Concomitant]
     Dates: start: 20090601
  3. PREDNISONE [Concomitant]
     Dates: start: 19990101, end: 20100114
  4. FOLIC ACID [Concomitant]
     Dates: start: 20090601
  5. ATORVASTATIN CALCIUM [Concomitant]
     Dates: start: 20040101
  6. ENALAPRIL MALEATE [Concomitant]
     Dates: start: 20040101
  7. IBUPROFENE [Concomitant]
     Dates: start: 20090617, end: 20090620
  8. AMOXICILLIN AND CLAVULANATE POTASSIUM [Concomitant]
     Dosage: AMOXICILINE/CLAVULAN C
     Dates: start: 20100407, end: 20100417
  9. AMOXICILLIN AND CLAVULANATE POTASSIUM [Concomitant]
     Dosage: AMOXICILINE/CLAVULAN C
     Dates: start: 20100517, end: 20100603
  10. CHLORPHENIRAMINE MALEATE [Concomitant]
     Dosage: CLORFENIRAMINE
     Dates: start: 20100205, end: 20100211
  11. CHLORPHENIRAMINE MALEATE [Concomitant]
     Dates: start: 20100305, end: 20100311
  12. AMOXICILLIN [Concomitant]
     Dosage: AMOXICILINE
     Dates: start: 20100503, end: 20100513

REACTIONS (1)
  - LEUKOPENIA [None]
